FAERS Safety Report 5015594-5 (Version None)
Quarter: 2006Q2

REPORT INFORMATION
  Report Type: 
  Country: None (occurrence: None)
  Receive Date: 20060526
  Receipt Date: 20060517
  Transmission Date: 20061013
  Serious: Yes (Other)
  Sender: FDA-Public Use
  Company Number: 2006060252

PATIENT
  Age: 53 Year
  Sex: Female
  Weight: 77.1115 kg

DRUGS (1)
  1. NEOSPORIN [Suspect]
     Indication: ANTI-INFECTIVE THERAPY
     Dosage: Q-TIP SIZE TWICE DAILY, TOPICAL
     Route: 061
     Dates: start: 20060412, end: 20060426

REACTIONS (7)
  - APPLICATION SITE ERYTHEMA [None]
  - APPLICATION SITE INFLAMMATION [None]
  - APPLICATION SITE SCAR [None]
  - APPLICATION SITE URTICARIA [None]
  - BLISTER [None]
  - DRUG HYPERSENSITIVITY [None]
  - SKIN EXFOLIATION [None]
